FAERS Safety Report 16811978 (Version 3)
Quarter: 2019Q4

REPORT INFORMATION
  Report Type: Report from Study
  Country: GB (occurrence: GB)
  Receive Date: 20190916
  Receipt Date: 20191020
  Transmission Date: 20200122
  Serious: Yes (Other)
  Sender: FDA-Public Use
  Company Number: PHHY2019GB202415

PATIENT
  Age: 76 Year
  Sex: Female

DRUGS (2)
  1. KISQALI [Suspect]
     Active Substance: RIBOCICLIB
     Indication: BREAST CANCER METASTATIC
     Dosage: 600 MG, QD
     Route: 048
     Dates: start: 20190815
  2. KISQALI [Suspect]
     Active Substance: RIBOCICLIB
     Dosage: 200 MG, TID
     Route: 048

REACTIONS (6)
  - Electrocardiogram PR shortened [Unknown]
  - Electrocardiogram T wave abnormal [Unknown]
  - Nausea [Recovering/Resolving]
  - Vomiting [Recovered/Resolved]
  - Left atrial enlargement [Unknown]
  - Ventricular extrasystoles [Unknown]

NARRATIVE: CASE EVENT DATE: 20190815
